FAERS Safety Report 10372168 (Version 2)
Quarter: 2014Q3

REPORT INFORMATION
  Report Type: Spontaneous
  Country: US (occurrence: US)
  Receive Date: 20140808
  Receipt Date: 20140808
  Transmission Date: 20150326
  Serious: Yes (Hospitalization)
  Sender: FDA-Public Use
  Company Number: US-BRISTOL-MYERS SQUIBB COMPANY-20668661

PATIENT
  Age: 66 Year
  Sex: Male

DRUGS (5)
  1. INSULIN GLARGINE [Suspect]
     Active Substance: INSULIN GLARGINE
  2. ALLOPURINOL. [Suspect]
     Active Substance: ALLOPURINOL
  3. FUROSEMIDE. [Suspect]
     Active Substance: FUROSEMIDE
  4. TAMSULOSIN [Suspect]
     Active Substance: TAMSULOSIN
  5. SPRYCEL [Suspect]
     Active Substance: DASATINIB
     Indication: CHRONIC MYELOID LEUKAEMIA
     Dosage: HELD ON 14APR14?REINTRO ON 9MAY14 AT 70MG/DAY
     Route: 048
     Dates: end: 20140414

REACTIONS (4)
  - White blood cell count decreased [Unknown]
  - Diarrhoea [Unknown]
  - Renal failure [Recovering/Resolving]
  - Hypotension [Recovering/Resolving]

NARRATIVE: CASE EVENT DATE: 20140414
